FAERS Safety Report 5000513-8 (Version None)
Quarter: 2006Q2

REPORT INFORMATION
  Report Type: 
  Country: None (occurrence: None)
  Receive Date: 20060512
  Receipt Date: 20060508
  Transmission Date: 20061013
  Serious: Yes (Death, Other)
  Sender: FDA-Public Use
  Company Number: PHBS2006JP06851

PATIENT
  Age: 76 Year
  Sex: Male

DRUGS (3)
  1. TEGRETOL [Suspect]
     Route: 048
  2. GASTER [Concomitant]
     Route: 048
  3. ADRENAL HORMONE PREPARATIONS [Concomitant]
     Route: 048

REACTIONS (2)
  - APLASTIC ANAEMIA [None]
  - DEATH [None]
